FAERS Safety Report 6964877-8 (Version None)
Quarter: 2010Q3

REPORT INFORMATION
  Report Type: 
  Country: None (occurrence: None)
  Receive Date: 20100903
  Receipt Date: 20100827
  Transmission Date: 20110219
  Serious: Yes (Other)
  Sender: FDA-Public Use
  Company Number: CA-JNJFOC-20100900273

PATIENT
  Sex: Male
  Weight: 77.11 kg

DRUGS (5)
  1. REMICADE [Suspect]
     Indication: ANKYLOSING SPONDYLITIS
     Route: 042
  2. REMICADE [Suspect]
     Route: 042
  3. REMICADE [Suspect]
     Route: 042
  4. TYLENOL W/ CODEINE NO. 3 [Concomitant]
  5. PARIET [Concomitant]

REACTIONS (1)
  - IRITIS [None]
